FAERS Safety Report 22246908 (Version 2)
Quarter: 2024Q1

REPORT INFORMATION
  Report Type: Spontaneous
  Country: AU (occurrence: AU)
  Receive Date: 20230424
  Receipt Date: 20240119
  Transmission Date: 20240410
  Serious: Yes (Hospitalization, Other)
  Sender: FDA-Public Use
  Company Number: AU-BAUSCHBL-2023BNL003356

PATIENT
  Age: 56 Year
  Sex: Female

DRUGS (36)
  1. ATROPINE [Suspect]
     Active Substance: ATROPINE\ATROPINE SULFATE
     Indication: Product used for unknown indication
     Route: 065
  2. DICLOFENAC [Suspect]
     Active Substance: DICLOFENAC
     Indication: Product used for unknown indication
     Dosage: DOSE: 3 PERCENT, INTERVAL: 3 DAY
     Route: 061
  3. ATORVASTATIN [Suspect]
     Active Substance: ATORVASTATIN
     Indication: Product used for unknown indication
     Dosage: IN THE MORNING
     Route: 065
  4. DOCUSATE SODIUM\SENNOSIDE B [Suspect]
     Active Substance: DOCUSATE SODIUM\SENNOSIDE B
     Indication: Product used for unknown indication
     Dosage: DOSE: 4 DOSE UNSPECIFIED, INTERVAL: 1 DAY
     Route: 065
  5. DOCUSATE SODIUM\SENNOSIDE B [Suspect]
     Active Substance: DOCUSATE SODIUM\SENNOSIDE B
     Dosage: DOSE: 2 DOSE UNSPECIFIED, INTERVAL: 1 DAY
     Route: 065
  6. CRESTOR [Suspect]
     Active Substance: ROSUVASTATIN CALCIUM
     Indication: Product used for unknown indication
     Dosage: ONCE EVERY NIGHT (QN)
     Route: 065
  7. ASPIRIN [Suspect]
     Active Substance: ASPIRIN
     Indication: Product used for unknown indication
     Dosage: ONCE EVERY NIGHT
     Route: 065
  8. CLOZAPINE [Suspect]
     Active Substance: CLOZAPINE
     Indication: Schizophrenia
     Route: 065
     Dates: start: 1990
  9. CLOZAPINE [Suspect]
     Active Substance: CLOZAPINE
     Indication: Schizoaffective disorder
     Route: 065
  10. CLOZAPINE [Suspect]
     Active Substance: CLOZAPINE
     Route: 065
  11. CLOZAPINE [Suspect]
     Active Substance: CLOZAPINE
     Route: 065
  12. CLOZAPINE [Suspect]
     Active Substance: CLOZAPINE
     Route: 065
  13. CLOZAPINE [Suspect]
     Active Substance: CLOZAPINE
     Route: 065
  14. CLOZAPINE [Suspect]
     Active Substance: CLOZAPINE
     Route: 065
  15. CLOZAPINE [Suspect]
     Active Substance: CLOZAPINE
     Route: 065
  16. CLOZAPINE [Suspect]
     Active Substance: CLOZAPINE
     Route: 065
  17. CLOZAPINE [Suspect]
     Active Substance: CLOZAPINE
     Route: 065
  18. CLOZAPINE [Suspect]
     Active Substance: CLOZAPINE
     Route: 065
     Dates: start: 20091121
  19. GLICLAZIDE [Suspect]
     Active Substance: GLICLAZIDE
     Indication: Product used for unknown indication
     Dosage: DOSE: 60 MILLIGRAM, INTERVAL: 1 DAY (MODIFIED-RELEASE TABLET)
     Route: 065
  20. LITHIUM [Suspect]
     Active Substance: LITHIUM
     Indication: Mania
     Dosage: LEVEL PENDING ON 20TH JULY
     Route: 065
  21. LITHIUM [Suspect]
     Active Substance: LITHIUM
     Indication: Prophylaxis
     Route: 065
  22. LITHIUM [Suspect]
     Active Substance: LITHIUM
     Route: 065
  23. LITHIUM [Suspect]
     Active Substance: LITHIUM
     Route: 065
  24. METFORMIN HYDROCHLORIDE [Suspect]
     Active Substance: METFORMIN HYDROCHLORIDE
     Indication: Product used for unknown indication
     Dosage: DOSE: 2 GRAM, INTERVAL: 1 DAY (EXTENDED RELEASE)
     Route: 065
  25. METFORMIN HYDROCHLORIDE [Suspect]
     Active Substance: METFORMIN HYDROCHLORIDE
     Dosage: DOSE: 1.5 GRAM, INTERVAL: 1 DAY (EXTENDED RELEASE)
     Route: 065
  26. OLANZAPINE [Suspect]
     Active Substance: OLANZAPINE
     Indication: Product used for unknown indication
     Dosage: DOSE: 10 MILLIGRAM, INTERVAL: 1 DAY
     Route: 030
  27. ACETAMINOPHEN [Suspect]
     Active Substance: ACETAMINOPHEN
     Indication: Product used for unknown indication
     Route: 065
  28. PERINDOPRIL [Suspect]
     Active Substance: PERINDOPRIL
     Indication: Product used for unknown indication
     Dosage: DOSE: 5 MILLIGRAM, INTERVAL: 1 DAY
     Route: 065
  29. PREGABALIN [Suspect]
     Active Substance: PREGABALIN
     Indication: Product used for unknown indication
     Route: 065
  30. PREGABALIN [Suspect]
     Active Substance: PREGABALIN
     Route: 065
  31. QUETIAPINE [Suspect]
     Active Substance: QUETIAPINE
     Indication: Product used for unknown indication
     Route: 065
  32. VALPROATE SODIUM [Suspect]
     Active Substance: VALPROATE SODIUM
     Indication: Product used for unknown indication
     Route: 048
  33. TEMAZEPAM [Suspect]
     Active Substance: TEMAZEPAM
     Indication: Product used for unknown indication
     Dosage: ONCE EVERY NIGHT
     Route: 065
  34. TEMAZEPAM [Suspect]
     Active Substance: TEMAZEPAM
     Route: 065
  35. CLOZAPINE [Suspect]
     Active Substance: CLOZAPINE
     Indication: Product used for unknown indication
     Route: 065
     Dates: start: 20101007
  36. CLOZAPINE [Suspect]
     Active Substance: CLOZAPINE
     Route: 065

REACTIONS (35)
  - Cardiomyopathy [Unknown]
  - Bipolar I disorder [Unknown]
  - Cerebral infarction [Unknown]
  - Rebound psychosis [Unknown]
  - Schizoaffective disorder [Not Recovered/Not Resolved]
  - Schizophrenia [Not Recovered/Not Resolved]
  - Myocarditis [Unknown]
  - Condition aggravated [Not Recovered/Not Resolved]
  - Abdominal pain [Not Recovered/Not Resolved]
  - Anosognosia [Recovering/Resolving]
  - Arthralgia [Unknown]
  - Blood creatine phosphokinase increased [Recovering/Resolving]
  - Constipation [Unknown]
  - Euphoric mood [Not Recovered/Not Resolved]
  - Fall [Unknown]
  - Fatigue [Unknown]
  - Hirsutism [Unknown]
  - Hypercalcaemia [Unknown]
  - Hyperthermia [Unknown]
  - Hypophagia [Unknown]
  - Judgement impaired [Not Recovered/Not Resolved]
  - Memory impairment [Not Recovered/Not Resolved]
  - Mental disorder [Recovering/Resolving]
  - Muscle injury [Unknown]
  - Muscle rigidity [Unknown]
  - Obsessive-compulsive disorder [Unknown]
  - Osteoporosis [Unknown]
  - Pain in extremity [Unknown]
  - Pressure of speech [Not Recovered/Not Resolved]
  - Sleep disorder [Recovering/Resolving]
  - Somatic symptom disorder [Not Recovered/Not Resolved]
  - Somnolence [Unknown]
  - Troponin increased [Unknown]
  - Vitamin D deficiency [Unknown]
  - Drug ineffective [Unknown]

NARRATIVE: CASE EVENT DATE: 20110101
